FAERS Safety Report 5621909-7 (Version None)
Quarter: 2008Q1

REPORT INFORMATION
  Report Type: 
  Country: None (occurrence: None)
  Receive Date: 20080211
  Receipt Date: 20080115
  Transmission Date: 20080703
  Serious: No
  Sender: FDA-Public Use
  Company Number: US-BRISTOL-MYERS SQUIBB COMPANY-14045231

PATIENT

DRUGS (2)
  1. IXEMPRA [Suspect]
  2. XELODA [Suspect]

REACTIONS (1)
  - HEPATIC ENZYME INCREASED [None]
